FAERS Safety Report 9251668 (Version 1)
Quarter: 2013Q1

REPORT INFORMATION
  Report Type: Spontaneous
  Country: US (occurrence: None)
  Receive Date: 20130305
  Receipt Date: 20130305
  Transmission Date: 20140127
  Serious: Yes (Hospitalization, Other)
  Sender: FDA-Public Use
  Company Number: 163-21880-12092684

PATIENT
  Age: 78 Year
  Sex: Male

DRUGS (4)
  1. REVLIMID [Suspect]
     Indication: MYELODYSPLASTIC SYNDROME
     Dosage: TEMPORARILY INTERRUPTEDE
     Route: 048
     Dates: start: 20120821
  2. AMLODIPINE BESYLATE (AMLODIPINE BESILATE) [Concomitant]
  3. GLUCOSAMINE CHONDROITIN COMPLEX (OSTEOGESIC PLUS) [Concomitant]
  4. HYDROCHLOROTHIAZIDE (HYDROCHLOROTHIAZIDE) [Concomitant]

REACTIONS (6)
  - Pneumonia [None]
  - Cough [None]
  - Pyrexia [None]
  - Groin abscess [None]
  - White blood cell count decreased [None]
  - Red blood cell count decreased [None]
